FAERS Safety Report 20154312 (Version 4)
Quarter: 2024Q3

REPORT INFORMATION
  Report Type: Report from Study
  Country: US (occurrence: US)
  Receive Date: 20211207
  Receipt Date: 20240702
  Transmission Date: 20241017
  Serious: Yes (Other)
  Sender: UCB
  Company Number: US-UCBSA-2021055840

PATIENT
  Age: 33 Year
  Sex: Female

DRUGS (3)
  1. LEVETIRACETAM [Suspect]
     Active Substance: LEVETIRACETAM
     Indication: Seizure
     Dosage: 1000 MILLIGRAM, 2X/DAY (BID)
  2. LEVETIRACETAM [Suspect]
     Active Substance: LEVETIRACETAM
     Dosage: 1000 MILLIGRAM + 500 MILLIGRAM-2X/DAY (BID)/ 500MG + 1000MG- 1 TAB EACH BID
  3. METFORMIN [Suspect]
     Active Substance: METFORMIN HYDROCHLORIDE
     Indication: Product used for unknown indication
     Dosage: 1000 MILLIGRAM

REACTIONS (8)
  - Ankle fracture [Not Recovered/Not Resolved]
  - Fall [Not Recovered/Not Resolved]
  - Insomnia [Not Recovered/Not Resolved]
  - Gastrointestinal disorder [Not Recovered/Not Resolved]
  - Adverse drug reaction [Not Recovered/Not Resolved]
  - Infertility [Not Recovered/Not Resolved]
  - Wrong technique in product usage process [Unknown]
  - Product availability issue [Unknown]

NARRATIVE: CASE EVENT DATE: 20211122
